FAERS Safety Report 14375526 (Version 1)
Quarter: 2018Q1

REPORT INFORMATION
  Report Type: Spontaneous
  Country: US (occurrence: US)
  Receive Date: 20180110
  Receipt Date: 20180110
  Transmission Date: 20180509
  Serious: No
  Sender: FDA-Public Use
  Company Number: None

PATIENT
  Age: 56 Year
  Sex: Male

DRUGS (5)
  1. RISPERDAL [Concomitant]
     Active Substance: RISPERIDONE
  2. DESONIDE. [Concomitant]
     Active Substance: DESONIDE
  3. VITAMIN D2 [Suspect]
     Active Substance: ERGOCALCIFEROL
     Indication: VITAMIN D DEFICIENCY
     Dosage: 50,000 UNIT/.25MG 1 CAPSULE TWICE A WK TWICE WEEKLY/CAPSULE BY MOUTH
     Route: 048
     Dates: start: 20171212, end: 20171212
  4. ASPRIN [Concomitant]
     Active Substance: ASPIRIN
  5. AMBIEN [Concomitant]
     Active Substance: ZOLPIDEM TARTRATE

REACTIONS (3)
  - Dyspnoea [None]
  - Pharyngeal oedema [None]
  - Swelling face [None]

NARRATIVE: CASE EVENT DATE: 20171212
